FAERS Safety Report 8847967 (Version 8)
Quarter: 2014Q3

REPORT INFORMATION
  Report Type: Spontaneous
  Country: US (occurrence: US)
  Receive Date: 20121018
  Receipt Date: 20140707
  Transmission Date: 20150326
  Serious: Yes (Hospitalization, Disabling, Other)
  Sender: FDA-Public Use
  Company Number: US-009507513-1210USA006895

PATIENT
  Sex: Female
  Weight: 97.51 kg

DRUGS (4)
  1. FOSAMAX [Suspect]
     Active Substance: ALENDRONATE SODIUM
     Dosage: 70 MG, QW
     Route: 048
  2. FOSAMAX PLUS D [Suspect]
     Active Substance: ALENDRONATE SODIUM\CHOLECALCIFEROL
     Indication: OSTEOPOROSIS
     Dosage: 70MG-5600IU QW
     Route: 048
     Dates: start: 20070313, end: 20100327
  3. FOSAMAX [Suspect]
     Active Substance: ALENDRONATE SODIUM
     Indication: OSTEOPOROSIS
     Dosage: UNK UNK,
     Route: 048
  4. FOSAMAX PLUS D [Suspect]
     Active Substance: ALENDRONATE SODIUM\CHOLECALCIFEROL
     Dosage: 2800 QW
     Route: 048

REACTIONS (36)
  - Oophorectomy [Unknown]
  - Fracture [Unknown]
  - Foot fracture [Unknown]
  - Bursitis [Unknown]
  - Ankle fracture [Unknown]
  - Arcus lipoides [Unknown]
  - Spinal osteoarthritis [Unknown]
  - Back pain [Unknown]
  - Femur fracture [Unknown]
  - Foot fracture [Unknown]
  - Foot fracture [Unknown]
  - Osteomyelitis [Unknown]
  - Hypertension [Unknown]
  - Bursitis [Unknown]
  - Oedema peripheral [Unknown]
  - Femur fracture [Not Recovered/Not Resolved]
  - Osteoarthritis [Unknown]
  - Rib fracture [Unknown]
  - Bone density decreased [Unknown]
  - Haemorrhagic anaemia [Unknown]
  - Chondropathy [Unknown]
  - Foot fracture [Unknown]
  - Pubis fracture [Unknown]
  - Extraskeletal ossification [Unknown]
  - Gastrooesophageal reflux disease [Unknown]
  - Osteoarthritis [Unknown]
  - Gait disturbance [Unknown]
  - Joint range of motion decreased [Unknown]
  - Bladder diverticulum [Unknown]
  - Intramedullary rod insertion [Not Recovered/Not Resolved]
  - Foot fracture [Unknown]
  - Hypertonia [Unknown]
  - Dyslipidaemia [Unknown]
  - Drug ineffective [Unknown]
  - Arthralgia [Unknown]
  - Muscle spasms [Unknown]

NARRATIVE: CASE EVENT DATE: 2003
